FAERS Safety Report 8278650-4 (Version None)
Quarter: 2012Q2

REPORT INFORMATION
  Report Type: 
  Country: None (occurrence: None)
  Receive Date: 20120412
  Receipt Date: 20111214
  Transmission Date: 20120825
  Serious: No
  Sender: FDA-Public Use
  Company Number: US-ASTRAZENECA-2009SE18293

PATIENT
  Age: 63 Year
  Sex: Female

DRUGS (2)
  1. NEXIUM [Suspect]
     Indication: HIATUS HERNIA
     Route: 048
     Dates: start: 20040101
  2. NEXIUM [Suspect]
     Route: 048
     Dates: start: 20060101

REACTIONS (7)
  - ANOSMIA [None]
  - INAPPROPRIATE SCHEDULE OF DRUG ADMINISTRATION [None]
  - GASTROOESOPHAGEAL REFLUX DISEASE [None]
  - MULTIPLE ALLERGIES [None]
  - DRUG DOSE OMISSION [None]
  - HEADACHE [None]
  - OFF LABEL USE [None]
